FAERS Safety Report 4709668-3 (Version None)
Quarter: 2005Q3

REPORT INFORMATION
  Report Type: 
  Country: None (occurrence: None)
  Receive Date: 20050707
  Receipt Date: 20050620
  Transmission Date: 20060218
  Serious: Yes (Hospitalization, Other)
  Sender: FDA-Public Use
  Company Number: USA030229263

PATIENT
  Age: 75 Year
  Sex: Female
  Weight: 68.0396 kg

DRUGS (15)
  1. FORTEO [Suspect]
     Indication: OSTEOPOROSIS
     Dosage: 20 UG/1 DAY
     Dates: start: 20030212, end: 20050617
  2. GLUCOSAMINE [Concomitant]
  3. ASCORBIC ACID [Concomitant]
  4. VITAMIN E [Concomitant]
  5. CALCIUM GLUCONATE [Concomitant]
  6. POTASSIUM CHLORIDE [Concomitant]
  7. LASIX [Concomitant]
  8. SYNTHROID [Concomitant]
  9. CELEBREX [Concomitant]
  10. COUMADIN [Concomitant]
  11. FLECAINIDE ACETATE [Concomitant]
  12. ATENOLOL [Concomitant]
  13. ATACAND [Concomitant]
  14. CLONIDINE [Concomitant]
  15. QUINIDINE HCL [Concomitant]

REACTIONS (9)
  - ACTIVITIES OF DAILY LIVING IMPAIRED [None]
  - ATRIAL FIBRILLATION [None]
  - BEDRIDDEN [None]
  - BLOOD PRESSURE DECREASED [None]
  - DYSPNOEA [None]
  - HEADACHE [None]
  - MEDICAL DEVICE COMPLICATION [None]
  - PHARMACEUTICAL PRODUCT COMPLAINT [None]
  - SINUSITIS [None]
